FAERS Safety Report 12336794 (Version 1)
Quarter: 2016Q2

REPORT INFORMATION
  Report Type: Spontaneous
  Country: FR (occurrence: FR)
  Receive Date: 20160505
  Receipt Date: 20160505
  Transmission Date: 20160815
  Serious: Yes (Other)
  Sender: FDA-Public Use
  Company Number: FR-ACTAVIS-2016-09269

PATIENT
  Age: 16 Year
  Sex: Female

DRUGS (3)
  1. VINBLASTINE [Suspect]
     Active Substance: VINBLASTINE
     Indication: GLIOMA
     Dosage: 6 MG/M2, CYCLICAL
     Route: 065
  2. BEVACIZUMAB [Concomitant]
     Active Substance: BEVACIZUMAB
     Indication: GLIOMA
     Dosage: 10 MG/KG, CYCLICAL; ON DAY 1 OF 2 WEEKS CYCLES
     Route: 065
  3. IRINOTECAN (UNKNOWN) [Suspect]
     Active Substance: IRINOTECAN
     Indication: GLIOMA
     Dosage: 125 MG/M2, CYCLICAL; ON DAY 15 OF 2 WEEKS CYCLES
     Route: 065

REACTIONS (3)
  - Nausea [Unknown]
  - Abdominal pain [Unknown]
  - Vomiting [Unknown]
